FAERS Safety Report 24945608 (Version 1)
Quarter: 2025Q1

REPORT INFORMATION
  Report Type: Spontaneous
  Country: US (occurrence: US)
  Receive Date: 20250209
  Receipt Date: 20250209
  Transmission Date: 20250408
  Serious: Yes (Life-Threatening, Hospitalization, Other)
  Sender: DR REDDYS
  Company Number: US-DRL-USA-USA/2025/01/001745

PATIENT
  Age: 35 Year
  Sex: Male

DRUGS (5)
  1. DILTIAZEM [Suspect]
     Active Substance: DILTIAZEM
     Indication: Tachycardia
  2. AMIODARONE [Suspect]
     Active Substance: AMIODARONE
     Indication: Tachycardia
  3. ADENOSINE [Suspect]
     Active Substance: ADENOSINE
     Indication: Tachycardia
  4. MAGNESIUM [Suspect]
     Active Substance: MAGNESIUM
     Indication: Tachycardia
     Route: 042
  5. AMITRIPTYLINE [Concomitant]
     Active Substance: AMITRIPTYLINE
     Indication: Vomiting

REACTIONS (3)
  - Condition aggravated [Unknown]
  - Drug ineffective [Unknown]
  - Product use in unapproved indication [Unknown]
